FAERS Safety Report 12401977 (Version 5)
Quarter: 2016Q3

REPORT INFORMATION
  Report Type: Spontaneous
  Country: US (occurrence: US)
  Receive Date: 20160525
  Receipt Date: 20160729
  Transmission Date: 20161109
  Serious: Yes (Hospitalization)
  Sender: FDA-Public Use
  Company Number: US-PFIZER INC-2016268612

PATIENT
  Age: 66 Year
  Sex: Female
  Weight: 72.57 kg

DRUGS (13)
  1. FISH OIL [Suspect]
     Active Substance: FISH OIL
     Indication: BLOOD TRIGLYCERIDES
     Dosage: 1000 MG, 2X/DAY
     Dates: start: 2013
  2. KLONOPIN [Concomitant]
     Active Substance: CLONAZEPAM
     Indication: MENOPAUSE
     Dosage: UNK
     Dates: start: 1997
  3. LYRICA [Suspect]
     Active Substance: PREGABALIN
     Indication: SCIATICA
     Dosage: 75 MG, 3X/DAY
     Dates: start: 2013
  4. FENOFIBRATE. [Suspect]
     Active Substance: FENOFIBRATE
     Indication: BLOOD TRIGLYCERIDES
     Dosage: 160 MG, 1X/DAY (1- AT NIGHT)
     Dates: start: 2013
  5. FISH OIL [Suspect]
     Active Substance: FISH OIL
     Indication: BLOOD CHOLESTEROL ABNORMAL
  6. KLONOPIN [Concomitant]
     Active Substance: CLONAZEPAM
     Dosage: 1 MG, 3X/DAY
     Dates: start: 2014
  7. HYDROCODONE [Concomitant]
     Active Substance: HYDROCODONE
     Indication: SCIATICA
     Dosage: UNK (5-325-1-3 X DAY)
  8. LYRICA [Suspect]
     Active Substance: PREGABALIN
     Indication: NERVE INJURY
     Dosage: 75 MG, 3X/DAY
     Dates: start: 2003
  9. LYRICA [Suspect]
     Active Substance: PREGABALIN
     Indication: NEURALGIA
     Dosage: 75 MG, 3X/DAY
     Dates: start: 20120302
  10. NEXIUM [Suspect]
     Active Substance: ESOMEPRAZOLE MAGNESIUM
     Indication: GASTROOESOPHAGEAL REFLUX DISEASE
     Dosage: 40 MG, 1X/DAY (1 A DAY)
     Dates: start: 2008
  11. CITALOPRAM [Suspect]
     Active Substance: CITALOPRAM HYDROBROMIDE
     Dosage: 20 MG, 1X/DAY (1 A DAY) (1 MORE DAILY)
     Dates: start: 2014
  12. FENOFIBRATE. [Suspect]
     Active Substance: FENOFIBRATE
     Indication: BLOOD CHOLESTEROL ABNORMAL
  13. HYDROCODONE [Concomitant]
     Active Substance: HYDROCODONE
     Indication: BACK PAIN
     Dosage: UNK
     Dates: start: 2012

REACTIONS (3)
  - Dental caries [Unknown]
  - Toothache [Recovered/Resolved]
  - Contusion [Recovered/Resolved]

NARRATIVE: CASE EVENT DATE: 2010
